FAERS Safety Report 7203147-X (Version None)
Quarter: 2010Q4

REPORT INFORMATION
  Report Type: 
  Country: None (occurrence: None)
  Receive Date: 20101229
  Receipt Date: 20101216
  Transmission Date: 20110411
  Serious: Yes (Disabling)
  Sender: FDA-Public Use
  Company Number: NL-MYLANLABS-2010S1023417

PATIENT
  Age: 81 Year
  Sex: Male

DRUGS (4)
  1. METOPROLOL [Suspect]
     Indication: ANGINA PECTORIS
     Route: 065
     Dates: start: 20041001, end: 20081101
  2. METOPROLOL [Suspect]
     Indication: HYPERTENSION
     Route: 065
     Dates: start: 20041001, end: 20081101
  3. METOPROLOL [Suspect]
     Route: 065
     Dates: start: 20041001, end: 20081101
  4. METOPROLOL [Suspect]
     Route: 065
     Dates: start: 20041001, end: 20081101

REACTIONS (4)
  - ANXIETY [None]
  - DEPRESSION [None]
  - NIGHTMARE [None]
  - SLEEP DISORDER [None]
